FAERS Safety Report 6765697-X (Version None)
Quarter: 2010Q2

REPORT INFORMATION
  Report Type: 
  Country: None (occurrence: None)
  Receive Date: 20100611
  Receipt Date: 20100531
  Transmission Date: 20101027
  Serious: Yes (Other)
  Sender: FDA-Public Use
  Company Number: PHHY2010DK22496

PATIENT
  Sex: Female
  Weight: 54 kg

DRUGS (3)
  1. RITALIN [Suspect]
     Indication: ATTENTION DEFICIT/HYPERACTIVITY DISORDER
     Dosage: 40 MG, DAILY
     Dates: start: 20090609
  2. RITALIN [Suspect]
     Dosage: 10 MG, BID
  3. VALPROAT [Suspect]
     Indication: AFFECTIVE DISORDER
     Dosage: 900 MG, DAILY
     Dates: start: 20090309, end: 20100405

REACTIONS (2)
  - ABORTION SPONTANEOUS [None]
  - DRUG EXPOSURE DURING PREGNANCY [None]
